FAERS Safety Report 9849470 (Version 2)
Quarter: 2014Q1

REPORT INFORMATION
  Report Type: Spontaneous
  Country: DE (occurrence: DE)
  Receive Date: 20140128
  Receipt Date: 20140219
  Transmission Date: 20141002
  Serious: Yes (Other)
  Sender: FDA-Public Use
  Company Number: PHHY2014DE010091

PATIENT
  Age: 46 Year
  Sex: Male
  Weight: 90 kg

DRUGS (6)
  1. TASIGNA [Suspect]
     Indication: CHRONIC MYELOID LEUKAEMIA
     Dosage: 300 MG IN THE MORNING AND  300 MG IN THE EVENING DAILY
     Route: 048
     Dates: start: 20131217, end: 20131224
  2. TASIGNA [Suspect]
     Dosage: 150 MG, BID
     Route: 048
     Dates: start: 20131224
  3. TASIGNA [Suspect]
     Route: 048
     Dates: start: 20140124
  4. ALLOPURINOL [Concomitant]
     Indication: PROPHYLAXIS
     Dosage: 300 MG, DAILY
     Route: 048
     Dates: start: 20131217, end: 20131224
  5. L-THYROXIN [Concomitant]
     Indication: HYPOTHYROIDISM
     Dosage: 174 MG, DAILY
  6. THYBON [Concomitant]
     Indication: HYPOTHYROIDISM
     Dosage: 20 MG, DAILY
     Route: 048

REACTIONS (5)
  - Pancreatitis [Recovered/Resolved]
  - Abdominal pain upper [Recovered/Resolved]
  - Weight decreased [Recovered/Resolved]
  - Lipase increased [Recovered/Resolved]
  - Dyspepsia [Recovered/Resolved]
